FAERS Safety Report 10440730 (Version 1)
Quarter: 2014Q3

REPORT INFORMATION
  Report Type: Spontaneous
  Country: US (occurrence: None)
  Receive Date: 20140908
  Receipt Date: 20140908
  Transmission Date: 20150326
  Serious: Yes (Life-Threatening)
  Sender: FDA-Public Use
  Company Number: None

PATIENT
  Age: 46 Year
  Sex: Male
  Weight: 79.38 kg

DRUGS (1)
  1. VIIBRYD [Suspect]
     Active Substance: VILAZODONE HYDROCHLORIDE
     Indication: DEPRESSION
     Dosage: 1 PILL  ONCE DAILY TAKEN BY MOUTH?
     Route: 048
     Dates: start: 20140710, end: 20140727

REACTIONS (4)
  - Suicidal ideation [None]
  - Agitation [None]
  - Aggression [None]
  - Cardiac disorder [None]

NARRATIVE: CASE EVENT DATE: 20140727
